FAERS Safety Report 19245848 (Version 1)
Quarter: 2021Q2

REPORT INFORMATION
  Report Type: Spontaneous
  Country: FR (occurrence: FR)
  Receive Date: 20210512
  Receipt Date: 20210512
  Transmission Date: 20210717
  Serious: Yes (Other)
  Sender: FDA-Public Use
  Company Number: FR-JNJFOC-20210512447

PATIENT
  Age: 49 Year

DRUGS (7)
  1. TEMERIT [Concomitant]
     Active Substance: NEBIVOLOL
     Dosage: UNK
  2. XARELTO [Suspect]
     Active Substance: RIVAROXABAN
     Indication: PRODUCT USED FOR UNKNOWN INDICATION
     Dosage: 20 MG
     Route: 048
     Dates: start: 2016, end: 2018
  3. XARELTO [Suspect]
     Active Substance: RIVAROXABAN
     Dosage: 20 MG
     Route: 048
  4. LEVOTHYROXINE. [Concomitant]
     Active Substance: LEVOTHYROXINE
     Dosage: UNK
  5. XARELTO [Suspect]
     Active Substance: RIVAROXABAN
     Dosage: 20 MG
     Route: 048
     Dates: start: 2018
  6. KARDEGIC [Concomitant]
     Active Substance: ASPIRIN DL-LYSINE
     Dosage: UNK
  7. LAROXYL [Concomitant]
     Active Substance: AMITRIPTYLINE HYDROCHLORIDE
     Dosage: UNK

REACTIONS (4)
  - Venous thrombosis [Unknown]
  - Periphlebitis [Unknown]
  - Pulmonary embolism [Unknown]
  - Pulmonary embolism [Unknown]

NARRATIVE: CASE EVENT DATE: 2016
